FAERS Safety Report 5027730-5 (Version None)
Quarter: 2006Q2

REPORT INFORMATION
  Report Type: 
  Country: None (occurrence: None)
  Receive Date: 20060614
  Receipt Date: 20060614
  Transmission Date: 20061013
  Serious: No
  Sender: FDA-Public Use
  Company Number: None

PATIENT
  Sex: Female

DRUGS (1)
  1. STRIVECTIN-SD [Suspect]
     Dosage: TOPICALLY
     Route: 061

REACTIONS (4)
  - DRUG HYPERSENSITIVITY [None]
  - NO THERAPEUTIC RESPONSE [None]
  - ORBITAL OEDEMA [None]
  - SKIN IRRITATION [None]
